FAERS Safety Report 11110511 (Version 1)
Quarter: 2015Q2

REPORT INFORMATION
  Report Type: Report from Study
  Country: NZ (occurrence: NZ)
  Receive Date: 20150513
  Receipt Date: 20150513
  Transmission Date: 20150821
  Serious: Yes (Hospitalization, Other)
  Sender: FDA-Public Use
  Company Number: NZ-ABBVIE-15K-118-1363944-00

PATIENT
  Age: 83 Year
  Sex: Female

DRUGS (1)
  1. HUMIRA [Suspect]
     Active Substance: ADALIMUMAB
     Indication: RHEUMATOID ARTHRITIS
     Route: 065

REACTIONS (6)
  - Muscle tightness [Unknown]
  - Infection [Unknown]
  - General physical health deterioration [Unknown]
  - Parkinson^s disease [Unknown]
  - Hip fracture [Unknown]
  - Immobile [Unknown]

NARRATIVE: CASE EVENT DATE: 201412
